FAERS Safety Report 5722001-3 (Version None)
Quarter: 2008Q2

REPORT INFORMATION
  Report Type: 
  Country: None (occurrence: None)
  Receive Date: 20080429
  Receipt Date: 20080418
  Transmission Date: 20081010
  Serious: Yes (Hospitalization)
  Sender: FDA-Public Use
  Company Number: CA-BOEHRINGER INGELHEIM GMBH, GERMANY-2008-CN-00165CN

PATIENT
  Sex: Female

DRUGS (1)
  1. MICARDIS HCT [Suspect]

REACTIONS (1)
  - LIVER ABSCESS [None]
